FAERS Safety Report 20154809 (Version 1)
Quarter: 2021Q4

REPORT INFORMATION
  Report Type: Spontaneous
  Country: CA (occurrence: CA)
  Receive Date: 20211207
  Receipt Date: 20211207
  Transmission Date: 20220304
  Serious: Yes (Other)
  Sender: FDA-Public Use
  Company Number: CA-TEVA-2021-CA-1984484

PATIENT
  Age: 66 Year
  Sex: Female

DRUGS (9)
  1. METHYLPREDNISOLONE [Suspect]
     Active Substance: METHYLPREDNISOLONE
     Indication: Vasculitis
     Route: 065
  2. METHYLPREDNISOLONE [Suspect]
     Active Substance: METHYLPREDNISOLONE
     Indication: Melanoma recurrent
     Route: 042
  3. METHYLPREDNISOLONE [Suspect]
     Active Substance: METHYLPREDNISOLONE
     Indication: Chronic sinusitis
     Route: 065
  4. INFLIXIMAB [Concomitant]
     Active Substance: INFLIXIMAB
     Indication: Vasculitis
  5. INFLIXIMAB [Concomitant]
     Active Substance: INFLIXIMAB
     Indication: Melanoma recurrent
  6. INFLIXIMAB [Concomitant]
     Active Substance: INFLIXIMAB
     Indication: Chronic sinusitis
  7. RITUXIMAB [Concomitant]
     Active Substance: RITUXIMAB
     Indication: Vasculitis
  8. RITUXIMAB [Concomitant]
     Active Substance: RITUXIMAB
     Indication: Melanoma recurrent
  9. RITUXIMAB [Concomitant]
     Active Substance: RITUXIMAB
     Indication: Chronic sinusitis

REACTIONS (2)
  - Chronic kidney disease [Unknown]
  - Steroid diabetes [Unknown]
